APPROVED DRUG PRODUCT: DOXIL (LIPOSOMAL)
Active Ingredient: DOXORUBICIN HYDROCHLORIDE
Strength: 20MG/10ML (2MG/ML)
Dosage Form/Route: INJECTABLE, LIPOSOMAL;INJECTION
Application: N050718 | Product #001 | TE Code: AB
Applicant: BAXTER HEALTHCARE CORP
Approved: Nov 17, 1995 | RLD: Yes | RS: No | Type: RX